FAERS Safety Report 7961361-X (Version None)
Quarter: 2011Q4

REPORT INFORMATION
  Report Type: 
  Country: None (occurrence: None)
  Receive Date: 20111207
  Receipt Date: 20111124
  Transmission Date: 20120403
  Serious: Yes (Hospitalization)
  Sender: FDA-Public Use
  Company Number: DE-ELI_LILLY_AND_COMPANY-DE201111007786

PATIENT
  Sex: Male

DRUGS (7)
  1. FOLIC ACID [Concomitant]
     Dosage: UNK, UNKNOWN
  2. ALIMTA [Suspect]
     Indication: LUNG ADENOCARCINOMA
     Dosage: 500 MG/M2, UNKNOWN
     Route: 042
     Dates: start: 20111026
  3. VITAMIN B-12 [Concomitant]
     Dosage: UNK, UNKNOWN
  4. CISPLATIN [Concomitant]
     Dosage: 75 MG/M2, UNKNOWN
  5. AVASTIN [Concomitant]
     Dosage: 7.5 MG/KG, UNKNOWN
  6. ASPIRIN [Concomitant]
     Dosage: UNK, UNKNOWN
  7. FORTECORTIN [Concomitant]
     Dosage: UNK, UNKNOWN

REACTIONS (2)
  - CEREBROVASCULAR ACCIDENT [None]
  - SWELLING [None]
